FAERS Safety Report 6656646-3 (Version None)
Quarter: 2010Q1

REPORT INFORMATION
  Report Type: 
  Country: None (occurrence: None)
  Receive Date: 20100329
  Receipt Date: 20100319
  Transmission Date: 20100710
  Serious: No
  Sender: FDA-Public Use
  Company Number: CA-ABBOTT-10P-028-0624012-00

PATIENT
  Sex: Female
  Weight: 76.4 kg

DRUGS (16)
  1. HUMIRA [Suspect]
     Indication: RHEUMATOID ARTHRITIS
     Route: 058
     Dates: start: 20001018, end: 20100114
  2. HUMIRA [Suspect]
     Route: 058
     Dates: start: 20100319
  3. FLUCONAZOLE [Concomitant]
     Indication: VULVOVAGINAL MYCOTIC INFECTION
     Route: 048
     Dates: start: 20060326, end: 20060326
  4. FLUCONAZOLE [Concomitant]
     Indication: PROPHYLAXIS
     Route: 048
     Dates: start: 20010907, end: 20050316
  5. FLUCONAZOLE [Concomitant]
     Route: 048
     Dates: start: 20080309, end: 20080309
  6. FLUCONAZOLE [Concomitant]
     Route: 048
     Dates: start: 20080817, end: 20080817
  7. TERAZOL 1 [Concomitant]
     Indication: VULVOVAGINAL MYCOTIC INFECTION
     Route: 048
     Dates: start: 20060326, end: 20060328
  8. TERAZOL 1 [Concomitant]
     Route: 048
     Dates: start: 20080507, end: 20080509
  9. TERAZOL 1 [Concomitant]
     Route: 048
     Dates: start: 20080817, end: 20080819
  10. NORETHINDRONE [Concomitant]
     Indication: CONTRACEPTION
     Route: 048
     Dates: start: 19980101
  11. ETHINYL ESTRADIOL [Concomitant]
     Indication: CONTRACEPTION
     Route: 048
     Dates: start: 19980101
  12. MULTI-VITAMIN [Concomitant]
     Indication: VITAMIN SUPPLEMENTATION
     Route: 048
     Dates: start: 20080801
  13. METHOTREXATE [Concomitant]
     Indication: RHEUMATOID ARTHRITIS
     Route: 048
     Dates: start: 20011102
  14. PREDNISONE TAB [Concomitant]
     Indication: RHEUMATOID ARTHRITIS
     Route: 048
     Dates: start: 20020528
  15. CELEBREX [Concomitant]
     Indication: RHEUMATOID ARTHRITIS
     Route: 048
     Dates: start: 19990512
  16. LEUCOVOSIN [Concomitant]
     Indication: RHEUMATOID ARTHRITIS
     Route: 048
     Dates: start: 19970619

REACTIONS (1)
  - ABDOMINAL MASS [None]
